FAERS Safety Report 9326346 (Version 5)
Quarter: 2013Q3

REPORT INFORMATION
  Report Type: Report from Study
  Country: HK (occurrence: HK)
  Receive Date: 20130604
  Receipt Date: 20130709
  Transmission Date: 20140515
  Serious: Yes (Hospitalization)
  Sender: FDA-Public Use
  Company Number: HK-AMGEN-HKGCT2013037034

PATIENT
  Age: 59 Year
  Sex: Female
  Weight: 55.5 kg

DRUGS (14)
  1. DENOSUMAB [Suspect]
     Indication: BREAST CANCER
     Dosage: OTHER
     Route: 058
     Dates: start: 20120704
  2. CALPEROS D3 [Concomitant]
     Dosage: UNK
     Route: 048
     Dates: start: 20120905
  3. ENTECAVIR [Concomitant]
     Dosage: 0.5 MG, UNK
     Route: 048
     Dates: start: 20100427
  4. MERISLON [Concomitant]
     Dosage: 6 MG, UNK
     Route: 048
     Dates: start: 20130226, end: 20130523
  5. CHLORPHENIRAMINE MALEATE [Concomitant]
     Dosage: 4 MG, UNK
     Route: 048
     Dates: start: 20130306, end: 20130422
  6. COCILLANA [Concomitant]
     Dosage: 10 ML, UNK
     Route: 048
     Dates: start: 20130306, end: 20130422
  7. EUPHORBIA SPP. [Concomitant]
     Dosage: UNK
     Route: 048
     Dates: start: 20130306, end: 20130422
  8. SENEGA [Concomitant]
     Dosage: UNK
     Route: 048
     Dates: start: 20130306, end: 20130422
  9. SQUILL [Concomitant]
     Dosage: UNK
     Route: 048
     Dates: start: 20130306, end: 20130422
  10. LYSOZYME CHLORIDE [Concomitant]
     Dosage: 30 MG, UNK
     Route: 048
     Dates: start: 20130306, end: 20130422
  11. PARACETAMOL [Concomitant]
     Dosage: 500 MG, UNK
     Route: 048
     Dates: start: 20130306
  12. STEMETIL [Concomitant]
     Dosage: 10 MG, UNK
     Route: 048
     Dates: start: 20130416, end: 20130530
  13. PONSTAN [Concomitant]
     Dosage: 250 MG, UNK
     Route: 048
     Dates: start: 20130520, end: 20130524
  14. TRIACT [Concomitant]
     Dosage: UNK
     Route: 048
     Dates: start: 20130520, end: 20130524

REACTIONS (2)
  - Hypertension [Recovered/Resolved]
  - Vertigo [Recovered/Resolved]
